FAERS Safety Report 23618103 (Version 1)
Quarter: 2024Q1

REPORT INFORMATION
  Report Type: Report from Study
  Country: US (occurrence: US)
  Receive Date: 20240311
  Receipt Date: 20240311
  Transmission Date: 20240410
  Serious: Yes (Hospitalization, Other)
  Sender: FDA-Public Use
  Company Number: US-ABBVIE-5672266

PATIENT
  Age: 83 Year
  Sex: Female

DRUGS (1)
  1. HUMIRA [Suspect]
     Active Substance: ADALIMUMAB
     Indication: Psoriasis
     Route: 058

REACTIONS (7)
  - Scoliosis [Unknown]
  - Adverse drug reaction [Unknown]
  - Medical device implantation [Unknown]
  - Intervertebral disc protrusion [Unknown]
  - Back disorder [Unknown]
  - Gait disturbance [Not Recovered/Not Resolved]
  - Benign neoplasm [Unknown]

NARRATIVE: CASE EVENT DATE: 20240107
